FAERS Safety Report 25601052 (Version 2)
Quarter: 2025Q4

REPORT INFORMATION
  Report Type: Spontaneous
  Country: KR (occurrence: KR)
  Receive Date: 20250724
  Receipt Date: 20251107
  Transmission Date: 20260117
  Serious: Yes (Hospitalization, Other)
  Sender: AMGEN
  Company Number: KR-AMGEN-KORSP2025144958

PATIENT
  Age: 76 Year
  Sex: Male

DRUGS (1)
  1. LUMAKRAS [Suspect]
     Active Substance: SOTORASIB
     Indication: Lung neoplasm malignant
     Dosage: 480 MILLIGRAM, QD (120 MG 4 TABLETS/DAY)
     Route: 065
     Dates: start: 202503, end: 2025

REACTIONS (4)
  - Terminal state [Unknown]
  - Unevaluable event [Unknown]
  - Expired product administered [Unknown]
  - Off label use [Unknown]

NARRATIVE: CASE EVENT DATE: 20250301
